FAERS Safety Report 18212673 (Version 1)
Quarter: 2020Q3

REPORT INFORMATION
  Report Type: Spontaneous
  Country: US (occurrence: US)
  Receive Date: 20200831
  Receipt Date: 20200831
  Transmission Date: 20201103
  Serious: Yes (Other)
  Sender: FDA-Public Use
  Company Number: US-MYLANLABS-2020M1075154

PATIENT
  Sex: Female

DRUGS (3)
  1. OXYCODONE [Concomitant]
     Active Substance: OXYCODONE
     Indication: ARTHRITIS
     Dosage: 30 MILLIGRAM, QID
  2. TRAMADOL. [Suspect]
     Active Substance: TRAMADOL
     Indication: ARTHRITIS
     Dosage: 80 MILLIGRAM, 6XD
     Route: 065
  3. SUBOXONE [Concomitant]
     Active Substance: BUPRENORPHINE HYDROCHLORIDE\NALOXONE HYDROCHLORIDE
     Indication: ARTHRITIS
     Dosage: 8/2 MILLIGRAM, QD

REACTIONS (2)
  - Anxiety [Not Recovered/Not Resolved]
  - Dependence [Unknown]
